FAERS Safety Report 5648510-3 (Version None)
Quarter: 2008Q1

REPORT INFORMATION
  Report Type: 
  Country: None (occurrence: None)
  Receive Date: 20080131
  Receipt Date: 20071221
  Transmission Date: 20080703
  Serious: No
  Sender: FDA-Public Use
  Company Number: 2005PV000030

PATIENT
  Age: 80 Year
  Sex: Male
  Weight: 64.9 kg

DRUGS (12)
  1. EXENATIDE (EXENATIDE) PEN, DISPOSABLE [Suspect]
     Indication: TYPE 2 DIABETES MELLITUS
     Dosage: SEE IMAGE
     Route: 058
     Dates: start: 20050611, end: 20050101
  2. EXENATIDE (EXENATIDE) PEN, DISPOSABLE [Suspect]
     Indication: TYPE 2 DIABETES MELLITUS
     Dosage: SEE IMAGE
     Route: 058
     Dates: start: 20050609, end: 20050610
  3. EXENATIDE (EXENATIDE) PEN, DISPOSABLE [Suspect]
     Indication: TYPE 2 DIABETES MELLITUS
     Dosage: SEE IMAGE
     Route: 058
     Dates: start: 20050101
  4. EXENATIDE (EXENATIDE) PEN, DISPOSABLE [Suspect]
  5. EXENATIDE (EXENATIDE) PEN, DISPOSABLE [Suspect]
  6. EXENATIDE (EXENATIDE) [Concomitant]
  7. AMARYL [Concomitant]
  8. LASIX [Concomitant]
  9. NORVASC [Concomitant]
  10. ACTOS [Concomitant]
  11. LIPITOR [Concomitant]
  12. TRICOR [Concomitant]

REACTIONS (8)
  - BLOOD GLUCOSE DECREASED [None]
  - BLOOD PRESSURE INCREASED [None]
  - DECREASED APPETITE [None]
  - DIZZINESS [None]
  - HYPERHIDROSIS [None]
  - HYPOACUSIS [None]
  - NAUSEA [None]
  - WEIGHT DECREASED [None]
